FAERS Safety Report 18170749 (Version 3)
Quarter: 2020Q3

REPORT INFORMATION
  Report Type: Spontaneous
  Country: BG (occurrence: BG)
  Receive Date: 20200819
  Receipt Date: 20200825
  Transmission Date: 20201103
  Serious: Yes (Other)
  Sender: FDA-Public Use
  Company Number: BG-CIRCASSIA PHARMACEUTICALS INC-2020BG004483

PATIENT

DRUGS (1)
  1. DUAKLIR [Suspect]
     Active Substance: ACLIDINIUM BROMIDE\FORMOTEROL FUMARATE
     Indication: PRODUCT USED FOR UNKNOWN INDICATION
     Dosage: UNK
     Route: 055

REACTIONS (4)
  - Dyspnoea [Unknown]
  - Device issue [Unknown]
  - Drug dose omission by device [Unknown]
  - Gait disturbance [Unknown]
